FAERS Safety Report 25111852 (Version 1)
Quarter: 2025Q1

REPORT INFORMATION
  Report Type: Spontaneous
  Country: US (occurrence: US)
  Receive Date: 20250324
  Receipt Date: 20250324
  Transmission Date: 20250409
  Serious: Yes (Other)
  Sender: HIKMA
  Company Number: HIKM2502700

PATIENT
  Age: 71 Year
  Sex: Male

DRUGS (1)
  1. FLUTICASONE PROPIONATE [Suspect]
     Active Substance: FLUTICASONE PROPIONATE
     Indication: Product used for unknown indication
     Route: 065

REACTIONS (3)
  - Euphoric mood [Recovered/Resolved]
  - Heart rate decreased [Unknown]
  - Hypoxia [Unknown]
